FAERS Safety Report 12360390 (Version 1)
Quarter: 2016Q2

REPORT INFORMATION
  Report Type: Spontaneous
  Country: BR (occurrence: BR)
  Receive Date: 20160512
  Receipt Date: 20160512
  Transmission Date: 20160815
  Serious: Yes (Other)
  Sender: FDA-Public Use
  Company Number: BR-AMGEN-BRASP2015126375

PATIENT
  Age: 47 Year
  Sex: Female
  Weight: 104 kg

DRUGS (9)
  1. VELIJA [Concomitant]
     Active Substance: DULOXETINE HYDROCHLORIDE
     Indication: ANXIETY
  2. OMEPRAZOLE. [Concomitant]
     Active Substance: OMEPRAZOLE
     Indication: GASTRIC DISORDER
     Dosage: UNK
  3. SELOZOK [Concomitant]
     Active Substance: METOPROLOL SUCCINATE
     Indication: CARDIAC DISORDER
     Dosage: UNK
     Dates: start: 2013
  4. UC II [Concomitant]
     Indication: OSTEOARTHRITIS
     Dosage: UNK
  5. BROMAZEPAM [Concomitant]
     Active Substance: BROMAZEPAM
     Indication: INSOMNIA
     Dosage: 3 MG, AT NIGHT
     Dates: start: 2009
  6. CYSTEX                             /01492901/ [Concomitant]
     Indication: URINARY INCONTINENCE
     Dosage: UNK
  7. ADDERA D3 [Concomitant]
     Active Substance: CHOLECALCIFEROL
     Dosage: UNK, WEEKLY
     Dates: start: 2014
  8. VELIJA [Concomitant]
     Active Substance: DULOXETINE HYDROCHLORIDE
     Indication: FIBROMYALGIA
     Dosage: UNK
     Dates: start: 2013
  9. ENBREL [Suspect]
     Active Substance: ETANERCEPT
     Indication: RHEUMATOID ARTHRITIS
     Dosage: 50 MG, ONCE WEEKLY
     Route: 065
     Dates: start: 20151104, end: 20151118

REACTIONS (19)
  - Fluid retention [Not Recovered/Not Resolved]
  - Skin hypertrophy [Unknown]
  - Injection site reaction [Not Recovered/Not Resolved]
  - Injection site hypersensitivity [Unknown]
  - Disease progression [Unknown]
  - Throat tightness [Recovered/Resolved]
  - Dyspnoea [Unknown]
  - Injection site pruritus [Recovered/Resolved]
  - Dysuria [Not Recovered/Not Resolved]
  - Rheumatic disorder [Unknown]
  - Feeling abnormal [Recovered/Resolved]
  - Drug hypersensitivity [Unknown]
  - Injection site induration [Unknown]
  - Paraesthesia [Recovered/Resolved]
  - Renal pain [Not Recovered/Not Resolved]
  - Pain [Unknown]
  - Injection site pain [Recovered/Resolved]
  - Injection site erythema [Recovered/Resolved]
  - Pruritus [Unknown]

NARRATIVE: CASE EVENT DATE: 201511
